FAERS Safety Report 14368859 (Version 1)
Quarter: 2018Q1

REPORT INFORMATION
  Report Type: Spontaneous
  Country: US (occurrence: US)
  Receive Date: 20180109
  Receipt Date: 20180109
  Transmission Date: 20180509
  Serious: Yes (Death, Other)
  Sender: FDA-Public Use
  Company Number: PHEH2018US000900

PATIENT
  Age: 66 Year
  Sex: Female
  Weight: 73.4 kg

DRUGS (8)
  1. PALBOCICLIB [Suspect]
     Active Substance: PALBOCICLIB
     Dosage: 75 MG, QD, (CONTINUOUS, 5 DAYS ON AND 2 DAYS OFF FOR A 28 DAY CYCLE )
     Route: 065
     Dates: start: 201710, end: 20171201
  2. LETROZOLE. [Suspect]
     Active Substance: LETROZOLE
     Indication: PRODUCT USED FOR UNKNOWN INDICATION
     Dosage: 2.5 MG, QD
     Route: 065
     Dates: start: 20170713, end: 20171201
  3. PALBOCICLIB [Suspect]
     Active Substance: PALBOCICLIB
     Dosage: 100 MG, QD, (CONTINUOUS, 5 DAYS ON AND 2 DAYS OFF FOR A 28)
     Route: 065
     Dates: start: 201708
  4. SECTRAL [Concomitant]
     Active Substance: ACEBUTOLOL HYDROCHLORIDE
     Indication: HYPERTENSION
     Dosage: UNK
     Route: 065
     Dates: start: 20130701, end: 20171201
  5. PALBOCICLIB [Suspect]
     Active Substance: PALBOCICLIB
     Indication: PRODUCT USED FOR UNKNOWN INDICATION
     Dosage: 75 MG, QD, (CONTINUOUS, 5 DAYS ON AND 2 DAYS OFF FOR A 28 DAY CYCLE)
     Route: 065
     Dates: start: 20170713
  6. LANTUS [Concomitant]
     Active Substance: INSULIN GLARGINE
     Indication: TYPE 2 DIABETES MELLITUS
     Dosage: UNK
     Route: 065
     Dates: start: 20080901
  7. HUMALOG [Concomitant]
     Active Substance: INSULIN LISPRO
     Indication: TYPE 2 DIABETES MELLITUS
  8. METFORMIN [Concomitant]
     Active Substance: METFORMIN HYDROCHLORIDE
     Indication: TYPE 2 DIABETES MELLITUS
     Dosage: UNK
     Route: 065
     Dates: start: 20080901, end: 20171201

REACTIONS (7)
  - Cytopenia [Unknown]
  - Vomiting [Unknown]
  - Subdural haematoma [Unknown]
  - Unresponsive to stimuli [Unknown]
  - Neutrophil count decreased [Unknown]
  - Haemorrhage intracranial [Fatal]
  - Platelet count decreased [Unknown]

NARRATIVE: CASE EVENT DATE: 20171130
